FAERS Safety Report 19151981 (Version 1)
Quarter: 2021Q2

REPORT INFORMATION
  Report Type: Spontaneous
  Country: US (occurrence: US)
  Receive Date: 20210419
  Receipt Date: 20210419
  Transmission Date: 20210717
  Serious: No
  Sender: FDA-Public Use
  Company Number: US-JNJFOC-20210406211

PATIENT
  Age: 62 Year
  Sex: Male
  Weight: 81.72 kg

DRUGS (1)
  1. MENS ROGAINE EXTRA STRENGTH [Suspect]
     Active Substance: MINOXIDIL
     Indication: ALOPECIA
     Dosage: MEASURING OUT 1/2 CAPFUL ON FINGERS?LAST DRUG ADMINISTERED: 30?MAR?2021
     Route: 061
     Dates: start: 202001

REACTIONS (4)
  - Poor quality product administered [Unknown]
  - Wrong technique in product usage process [Unknown]
  - Product formulation issue [Unknown]
  - Incorrect dose administered [Unknown]

NARRATIVE: CASE EVENT DATE: 202001
